FAERS Safety Report 13675345 (Version 1)
Quarter: 2017Q2

REPORT INFORMATION
  Report Type: Other
  Country: GB (occurrence: ES)
  Receive Date: 20170621
  Receipt Date: 20170621
  Transmission Date: 20170830
  Serious: Yes (Hospitalization, Other)
  Sender: FDA-Public Use
  Company Number: ES-CLARIS PHARMASERVICES-2022352

PATIENT
  Age: 31 Year
  Sex: Male

DRUGS (2)
  1. LEVOFLOXACIN. [Suspect]
     Active Substance: LEVOFLOXACIN
  2. PHENYTOIN. [Suspect]
     Active Substance: PHENYTOIN

REACTIONS (1)
  - Drug interaction [Recovered/Resolved]
